FAERS Safety Report 20635039 (Version 2)
Quarter: 2022Q2

REPORT INFORMATION
  Report Type: Spontaneous
  Country: US (occurrence: US)
  Receive Date: 20220325
  Receipt Date: 20220405
  Transmission Date: 20220721
  Serious: No
  Sender: FDA-Public Use
  Company Number: US-LUPIN PHARMACEUTICALS INC.-2022-04394

PATIENT
  Age: 53 Year
  Sex: Female

DRUGS (4)
  1. MISOPROSTOL [Suspect]
     Active Substance: MISOPROSTOL
     Indication: Uterine enlargement
     Dosage: 200 MCG, SINGLE
     Route: 065
  2. MISOPROSTOL [Suspect]
     Active Substance: MISOPROSTOL
     Indication: Menstrual disorder
  3. MISOPROSTOL [Suspect]
     Active Substance: MISOPROSTOL
     Indication: Stenosis
  4. MISOPROSTOL [Suspect]
     Active Substance: MISOPROSTOL
     Indication: Uterine cervix stenosis

REACTIONS (2)
  - Product prescribing error [Unknown]
  - Off label use [Unknown]
